FAERS Safety Report 9731235 (Version 2)
Quarter: 2015Q2

REPORT INFORMATION
  Report Type: Spontaneous
  Country: US (occurrence: US)
  Receive Date: 20131203
  Receipt Date: 20150528
  Transmission Date: 20150821
  Serious: Yes (Life-Threatening, Hospitalization, Congenital Anomaly, Other)
  Sender: FDA-Public Use
  Company Number: US-ELI_LILLY_AND_COMPANY-US201311007597

PATIENT

DRUGS (1)
  1. PROZAC [Suspect]
     Active Substance: FLUOXETINE HYDROCHLORIDE
     Indication: PRODUCT USED FOR UNKNOWN INDICATION
     Dosage: UNK, UNKNOWN
     Route: 064

REACTIONS (24)
  - Coarctation of the aorta [Unknown]
  - Memory impairment [Unknown]
  - Developmental delay [Unknown]
  - Venous occlusion [Recovered/Resolved]
  - Pleural effusion [Recovered/Resolved]
  - Congenital aortic valve incompetence [Unknown]
  - Pulmonary artery stenosis congenital [Unknown]
  - Right ventricular dysfunction [Recovered/Resolved]
  - Right ventricular hypertrophy [Unknown]
  - Pulmonary arterial pressure decreased [Unknown]
  - Metabolic acidosis [Unknown]
  - Cyanosis [Recovered/Resolved]
  - Atrial septal defect [Unknown]
  - Oliguria [Unknown]
  - Mitral valve hypoplasia [Unknown]
  - Congenital pulmonary artery anomaly [Unknown]
  - Tricuspid valve incompetence [Unknown]
  - Post procedural haematoma [Recovered/Resolved]
  - Foetal exposure during pregnancy [Recovered/Resolved]
  - Left ventricular end-diastolic pressure increased [Unknown]
  - Pericardial effusion [Recovered/Resolved]
  - Exposure during breast feeding [Unknown]
  - Hypoplastic left heart syndrome [Unknown]
  - Cardiomegaly [Unknown]
